FAERS Safety Report 7579460-3 (Version None)
Quarter: 2011Q2

REPORT INFORMATION
  Report Type: 
  Country: None (occurrence: None)
  Receive Date: 20110622
  Receipt Date: 20110615
  Transmission Date: 20111010
  Serious: Yes (Hospitalization, Disabling, Other)
  Sender: FDA-Public Use
  Company Number: 2010SP025276

PATIENT
  Age: 44 Year
  Sex: Female
  Weight: 61.2356 kg

DRUGS (4)
  1. SINGULAIR [Concomitant]
  2. NUVARING [Suspect]
     Indication: CONTRACEPTION
     Dates: start: 20061001, end: 20080430
  3. ZYRTEC [Concomitant]
  4. PAXIL [Concomitant]

REACTIONS (28)
  - HYPERTENSION [None]
  - CARDIOMEGALY [None]
  - TACHYCARDIA [None]
  - STRESS FRACTURE [None]
  - SMEAR CERVIX ABNORMAL [None]
  - POST-TRAUMATIC STRESS DISORDER [None]
  - ATELECTASIS [None]
  - IMPAIRED WORK ABILITY [None]
  - UTERINE LEIOMYOMA [None]
  - PREGNANCY [None]
  - MUSCULOSKELETAL DEFORMITY [None]
  - OVARIAN CYST [None]
  - PLEURISY [None]
  - GRANULOMA [None]
  - HEART RATE IRREGULAR [None]
  - DIASTOLIC DYSFUNCTION [None]
  - DECREASED ACTIVITY [None]
  - HUMAN PAPILLOMA VIRUS TEST POSITIVE [None]
  - PULMONARY EMBOLISM [None]
  - FEMUR FRACTURE [None]
  - HYPERCOAGULATION [None]
  - CHEST PAIN [None]
  - NODULE [None]
  - PERICARDITIS CONSTRICTIVE [None]
  - AFFECTIVE DISORDER [None]
  - EJECTION FRACTION DECREASED [None]
  - ARTHRALGIA [None]
  - SCAR [None]
